FAERS Safety Report 5917366-3 (Version None)
Quarter: 2008Q4

REPORT INFORMATION
  Report Type: 
  Country: None (occurrence: None)
  Receive Date: 20081014
  Receipt Date: 20081003
  Transmission Date: 20090506
  Serious: Yes (Other)
  Sender: FDA-Public Use
  Company Number: US-WYE-H06254608

PATIENT
  Age: 5 Year
  Sex: Female

DRUGS (1)
  1. GUAIFENESIN/PSEUDOEPHEDRINE HYDROCHLORIDE [Suspect]
     Dosage: UNKNOWN
     Route: 065

REACTIONS (2)
  - DRUG ERUPTION [None]
  - HYPERSENSITIVITY [None]
